APPROVED DRUG PRODUCT: DOXORUBICIN HYDROCHLORIDE
Active Ingredient: DOXORUBICIN HYDROCHLORIDE
Strength: 10MG/VIAL
Dosage Form/Route: INJECTABLE;INJECTION
Application: A062921 | Product #001
Applicant: HIKMA PHARMACEUTICALS USA INC
Approved: Mar 17, 1989 | RLD: No | RS: Yes | Type: RX